FAERS Safety Report 14665774 (Version 2)
Quarter: 2018Q3

REPORT INFORMATION
  Report Type: Spontaneous
  Country: US (occurrence: US)
  Receive Date: 20180321
  Receipt Date: 20180809
  Transmission Date: 20181010
  Serious: Yes (Other)
  Sender: FDA-Public Use
  Company Number: US-BAYER-2018-049364

PATIENT
  Age: 18 Year
  Sex: Female
  Weight: 86.62 kg

DRUGS (2)
  1. SKYLA [Suspect]
     Active Substance: LEVONORGESTREL
     Indication: CONTRACEPTION
     Dosage: 14 MCG/24HR, CONT
     Route: 015
     Dates: start: 201412, end: 20171221
  2. KYLEENA [Suspect]
     Active Substance: LEVONORGESTREL
     Indication: CONTRACEPTION
     Dosage: 17.5 MCG/24HR, CONT
     Route: 015
     Dates: start: 20171221

REACTIONS (6)
  - Contraindicated device used [None]
  - Pregnancy with contraceptive device [Not Recovered/Not Resolved]
  - Device issue [None]
  - Medical device monitoring error [None]
  - Placenta praevia [None]
  - Drug ineffective [None]

NARRATIVE: CASE EVENT DATE: 201711
